FAERS Safety Report 24806709 (Version 2)
Quarter: 2025Q1

REPORT INFORMATION
  Report Type: Spontaneous
  Country: CA (occurrence: CA)
  Receive Date: 20250104
  Receipt Date: 20250331
  Transmission Date: 20250408
  Serious: Yes (Death, Life-Threatening, Hospitalization, Disabling, Congenital Anomaly, Other)
  Sender: CHATTEM
  Company Number: CA-SA-2024SA377123

PATIENT
  Sex: Female
  Weight: 96 kg

DRUGS (13)
  1. FOLIC ACID [Suspect]
     Active Substance: FOLIC ACID
     Indication: Rheumatoid arthritis
  2. FOLIC ACID [Suspect]
     Active Substance: FOLIC ACID
  3. FOLIC ACID [Suspect]
     Active Substance: FOLIC ACID
  4. FOLIC ACID [Suspect]
     Active Substance: FOLIC ACID
  5. FOLIC ACID [Suspect]
     Active Substance: FOLIC ACID
  6. FOLIC ACID [Suspect]
     Active Substance: FOLIC ACID
     Route: 048
  7. CALCIUM [Suspect]
     Active Substance: CALCIUM
     Indication: Product used for unknown indication
  8. CETIRIZINE HYDROCHLORIDE [Suspect]
     Active Substance: CETIRIZINE HYDROCHLORIDE
     Indication: Rheumatoid arthritis
     Route: 048
  9. CETIRIZINE HYDROCHLORIDE [Suspect]
     Active Substance: CETIRIZINE HYDROCHLORIDE
     Route: 048
  10. DESOXIMETASONE [Suspect]
     Active Substance: DESOXIMETASONE
     Indication: Rheumatoid arthritis
  11. DESOXIMETASONE [Suspect]
     Active Substance: DESOXIMETASONE
     Route: 048
  12. DESOXIMETASONE [Suspect]
     Active Substance: DESOXIMETASONE
     Route: 058
  13. RANITIDINE HYDROCHLORIDE [Suspect]
     Active Substance: RANITIDINE HYDROCHLORIDE
     Indication: Rheumatoid arthritis

REACTIONS (2)
  - Abdominal discomfort [Fatal]
  - Maternal exposure during pregnancy [Fatal]
